FAERS Safety Report 6370856-4 (Version None)
Quarter: 2009Q3

REPORT INFORMATION
  Report Type: 
  Country: None (occurrence: None)
  Receive Date: 20090923
  Receipt Date: 20070621
  Transmission Date: 20100115
  Serious: No
  Sender: FDA-Public Use
  Company Number: US-ASTRAZENECA-2006UW24791

PATIENT
  Age: 46 Year
  Sex: Female
  Weight: 96.6 kg

DRUGS (28)
  1. SEROQUEL [Suspect]
     Indication: INSOMNIA
     Route: 048
     Dates: start: 20050601, end: 20070122
  2. SEROQUEL [Suspect]
     Indication: DEPRESSION
     Route: 048
     Dates: start: 20050601, end: 20070122
  3. SEROQUEL [Suspect]
     Indication: ANXIETY DISORDER
     Route: 048
     Dates: start: 20050601, end: 20070122
  4. SEROQUEL [Suspect]
     Indication: PANIC DISORDER
     Route: 048
     Dates: start: 20050601, end: 20070122
  5. SEROQUEL [Suspect]
     Route: 048
     Dates: start: 20050601, end: 20070122
  6. SEROQUEL [Suspect]
     Dosage: 25 MG TO 100 MG
     Route: 048
     Dates: start: 20040130, end: 20071115
  7. SEROQUEL [Suspect]
     Dosage: 25 MG TO 100 MG
     Route: 048
     Dates: start: 20040130, end: 20071115
  8. SEROQUEL [Suspect]
     Dosage: 25 MG TO 100 MG
     Route: 048
     Dates: start: 20040130, end: 20071115
  9. SEROQUEL [Suspect]
     Dosage: 25 MG TO 100 MG
     Route: 048
     Dates: start: 20040130, end: 20071115
  10. SEROQUEL [Suspect]
     Dosage: 25 MG TO 100 MG
     Route: 048
     Dates: start: 20040130, end: 20071115
  11. LEXAPRO [Concomitant]
  12. XANAX [Concomitant]
  13. TRAZODONE [Concomitant]
  14. TYLENOL (CAPLET) [Concomitant]
  15. CYCLOBENZAPRINE [Concomitant]
  16. WARFARIN SODIUM [Concomitant]
  17. NICOTIN PATCH [Concomitant]
  18. LOVENOX [Concomitant]
  19. VICODIN [Concomitant]
  20. PROMETHAZINE [Concomitant]
  21. DIFLUCAN [Concomitant]
  22. ALPRAZOLAM [Concomitant]
  23. COUMADIN [Concomitant]
  24. HYDROCODONE [Concomitant]
  25. FLEXERIL [Concomitant]
  26. AMOXICILLIN [Concomitant]
  27. OXYCODONE [Concomitant]
  28. ALBUTEROL [Concomitant]

REACTIONS (30)
  - ABDOMINAL PAIN LOWER [None]
  - BACK PAIN [None]
  - BRONCHITIS [None]
  - CHEST PAIN [None]
  - CONJUNCTIVITIS ALLERGIC [None]
  - CYSTITIS [None]
  - DYSLIPIDAEMIA [None]
  - EAR PAIN [None]
  - FOOD POISONING [None]
  - HAEMATURIA [None]
  - HYPERCHOLESTEROLAEMIA [None]
  - HYPERLIPIDAEMIA [None]
  - INFLUENZA [None]
  - JOINT EFFUSION [None]
  - METABOLIC SYNDROME [None]
  - MYALGIA [None]
  - NECK PAIN [None]
  - OROPHARYNGEAL PAIN [None]
  - PARAESTHESIA [None]
  - PAROTITIS [None]
  - POLLAKIURIA [None]
  - PRODUCTIVE COUGH [None]
  - PYREXIA [None]
  - TENDONITIS [None]
  - TOOTH ABSCESS [None]
  - TREMOR [None]
  - TYPE 2 DIABETES MELLITUS [None]
  - URINARY INCONTINENCE [None]
  - VAGINITIS BACTERIAL [None]
  - VIRAL PHARYNGITIS [None]
